FAERS Safety Report 15058505 (Version 1)
Quarter: 2018Q2

REPORT INFORMATION
  Report Type: Spontaneous
  Country: DE (occurrence: DE)
  Receive Date: 20180625
  Receipt Date: 20180625
  Transmission Date: 20180711
  Serious: Yes (Other)
  Sender: FDA-Public Use
  Company Number: PHHY2018DE025705

PATIENT
  Sex: Male

DRUGS (1)
  1. DOXEPIN 1A PHARMA [Suspect]
     Active Substance: DOXEPIN
     Indication: PRODUCT USED FOR UNKNOWN INDICATION
     Dosage: 10 MG, UNK
     Route: 065
     Dates: start: 201805

REACTIONS (7)
  - Genital burning sensation [Not Recovered/Not Resolved]
  - Dry mouth [Unknown]
  - Skin irritation [Not Recovered/Not Resolved]
  - Muscle rupture [Not Recovered/Not Resolved]
  - Genital pain [Not Recovered/Not Resolved]
  - Genital injury [Not Recovered/Not Resolved]
  - Erythema [Not Recovered/Not Resolved]

NARRATIVE: CASE EVENT DATE: 20180610
